FAERS Safety Report 10570165 (Version 1)
Quarter: 2014Q4

REPORT INFORMATION
  Report Type: Report from Study
  Country: US (occurrence: US)
  Receive Date: 20141107
  Receipt Date: 20141107
  Transmission Date: 20150529
  Serious: Yes (Life-Threatening)
  Sender: FDA-Public Use
  Company Number: US-BAYER-2014-164874

PATIENT
  Sex: Female

DRUGS (1)
  1. BETASERON [Suspect]
     Active Substance: INTERFERON BETA-1B
     Indication: MULTIPLE SCLEROSIS
     Dosage: 0.25 MG, QOD
     Route: 058
     Dates: start: 20120330, end: 20141024

REACTIONS (5)
  - Seizure [None]
  - Muscle rigidity [None]
  - Dysarthria [None]
  - Seizure [None]
  - Confusional state [None]

NARRATIVE: CASE EVENT DATE: 2014
